FAERS Safety Report 10335223 (Version 3)
Quarter: 2014Q3

REPORT INFORMATION
  Report Type: Spontaneous
  Country: GB (occurrence: GB)
  Receive Date: 20140723
  Receipt Date: 20140811
  Transmission Date: 20150326
  Serious: Yes (Life-Threatening, Disabling, Other)
  Sender: FDA-Public Use
  Company Number: GB-BAYER-2014-104096

PATIENT
  Age: 29 Year
  Sex: Female
  Weight: 58.51 kg

DRUGS (1)
  1. QLAIRA FILM-COATED TABLETS [Suspect]
     Active Substance: DIENOGEST\ESTRADIOL VALERATE
     Indication: CONTRACEPTION
     Dosage: 1 DF, QD
     Route: 048
     Dates: start: 20140129, end: 20140701

REACTIONS (5)
  - Panic attack [None]
  - Depression [Recovered/Resolved]
  - Varicose vein [Not Recovered/Not Resolved]
  - Acne [Not Recovered/Not Resolved]
  - Anxiety [Recovered/Resolved]

NARRATIVE: CASE EVENT DATE: 201402
